FAERS Safety Report 7524605-4 (Version None)
Quarter: 2011Q2

REPORT INFORMATION
  Report Type: 
  Country: None (occurrence: None)
  Receive Date: 20110606
  Receipt Date: 20110531
  Transmission Date: 20111010
  Serious: No
  Sender: FDA-Public Use
  Company Number: CA-JNJFOC-20110512697

PATIENT
  Age: 66 Year
  Sex: Female

DRUGS (1)
  1. DURAGESIC-12 [Suspect]
     Indication: PRODUCT USED FOR UNKNOWN INDICATION
     Route: 062

REACTIONS (2)
  - DRUG DOSE OMISSION [None]
  - PAIN [None]
